FAERS Safety Report 18028283 (Version 8)
Quarter: 2020Q4

REPORT INFORMATION
  Report Type: Report from Study
  Country: IE (occurrence: IE)
  Receive Date: 20200716
  Receipt Date: 20201230
  Transmission Date: 20210113
  Serious: Yes (Hospitalization, Other)
  Sender: FDA-Public Use
  Company Number: IE-TAKEDA-2020TUS026433

PATIENT
  Age: 64 Year
  Sex: Male

DRUGS (29)
  1. BORTEZOMIB. [Suspect]
     Active Substance: BORTEZOMIB
     Dosage: 2 MILLIGRAM/SQ. METER
     Route: 058
     Dates: start: 20200904
  2. BORTEZOMIB. [Suspect]
     Active Substance: BORTEZOMIB
     Dosage: 1.3 MILLIGRAM/SQ. METER
     Route: 058
     Dates: start: 20201211
  3. DEXAMETHASONE. [Concomitant]
     Active Substance: DEXAMETHASONE
     Dosage: 20 MILLIGRAM
     Route: 065
  4. DEXAMETHASONE. [Concomitant]
     Active Substance: DEXAMETHASONE
     Dosage: 40 MILLIGRAM, 1/WEEK
     Route: 065
  5. OMEPRAZOLE. [Concomitant]
     Active Substance: OMEPRAZOLE
     Dosage: 20 MILLIGRAM, QD
     Route: 065
  6. REVLIMID [Concomitant]
     Active Substance: LENALIDOMIDE
     Dosage: 25 MILLIGRAM, QD
     Route: 065
  7. ASPRIN [Concomitant]
     Active Substance: ASPIRIN
     Dosage: 75 MILLIGRAM, QD
     Route: 065
  8. NEXIUM [Concomitant]
     Active Substance: ESOMEPRAZOLE MAGNESIUM
     Dosage: 40 MILLIGRAM, QD
     Route: 065
  9. CALCICHEW [Concomitant]
     Active Substance: CALCIUM CARBONATE
     Dosage: 2 MILLIGRAM, BID
     Route: 065
  10. VALTRAX [Concomitant]
     Active Substance: DIAZEPAM\ISOPROPAMIDE IODIDE
     Dosage: 500 MILLIGRAM, QD
     Route: 065
  11. VALOID                             /00014902/ [Concomitant]
     Active Substance: CYCLIZINE HYDROCHLORIDE
     Dosage: 50 MILLIGRAM, TID
     Route: 065
  12. AUGMENTIN [Concomitant]
     Active Substance: AMOXICILLIN\CLAVULANATE POTASSIUM
     Dosage: 625 MILLIGRAM, TID
     Route: 065
  13. BORTEZOMIB. [Suspect]
     Active Substance: BORTEZOMIB
     Dosage: 1.3 MILLIGRAM/SQ. METER
     Route: 058
     Dates: start: 20200710
  14. BORTEZOMIB. [Suspect]
     Active Substance: BORTEZOMIB
     Dosage: UNK
     Route: 058
     Dates: start: 20200904
  15. BORTEZOMIB. [Suspect]
     Active Substance: BORTEZOMIB
     Dosage: 2 MILLIGRAM/SQ. METER
     Route: 058
     Dates: start: 20201113
  16. AMLODIPINE [Concomitant]
     Active Substance: AMLODIPINE BESYLATE
     Dosage: 10 MILLIGRAM, QD
     Route: 065
  17. CALCICHEW [Concomitant]
     Active Substance: CALCIUM CARBONATE
     Dosage: 2 MILLIGRAM, BID
     Route: 065
  18. BORTEZOMIB. [Suspect]
     Active Substance: BORTEZOMIB
     Dosage: 1.3 MILLIGRAM/SQ. METER
     Route: 058
     Dates: start: 20200724
  19. BORTEZOMIB. [Suspect]
     Active Substance: BORTEZOMIB
     Dosage: UNK
     Route: 058
     Dates: start: 20200918
  20. BORTEZOMIB. [Suspect]
     Active Substance: BORTEZOMIB
     Dosage: 2 MILLIGRAM/SQ. METER
     Route: 058
     Dates: start: 20201002
  21. REVLIMID [Concomitant]
     Active Substance: LENALIDOMIDE
     Dosage: 25 MILLIGRAM, QD
     Route: 065
  22. BORTEZOMIB. [Suspect]
     Active Substance: BORTEZOMIB
     Indication: PLASMA CELL MYELOMA
     Dosage: 1.3 MILLIGRAM/SQ. METER
     Route: 058
     Dates: start: 20181214
  23. BORTEZOMIB. [Suspect]
     Active Substance: BORTEZOMIB
     Dosage: 1.3 MILLIGRAM/SQ. METER
     Route: 058
     Dates: start: 20200626
  24. BORTEZOMIB. [Suspect]
     Active Substance: BORTEZOMIB
     Dosage: 2 MILLIGRAM/SQ. METER
     Route: 058
     Dates: start: 20201127
  25. MOTILIUM [Concomitant]
     Active Substance: DOMPERIDONE
     Dosage: 20 MILLIGRAM
     Route: 065
  26. REVLIMID [Concomitant]
     Active Substance: LENALIDOMIDE
     Dosage: 10 MILLIGRAM, QD
     Route: 065
  27. XARELTO [Concomitant]
     Active Substance: RIVAROXABAN
     Dosage: 20 MILLIGRAM, QD
     Route: 065
  28. BORTEZOMIB. [Suspect]
     Active Substance: BORTEZOMIB
     Dosage: 1.3 MILLIGRAM/SQ. METER
     Route: 058
     Dates: start: 20200807
  29. CLEXANE [Concomitant]
     Active Substance: ENOXAPARIN SODIUM
     Dosage: 6000 INTERNATIONAL UNIT, QD
     Route: 065

REACTIONS (4)
  - Lower respiratory tract infection [Recovering/Resolving]
  - Blood calcium decreased [Not Recovered/Not Resolved]
  - Neuropathy peripheral [Not Recovered/Not Resolved]
  - Thrombosis [Recovering/Resolving]

NARRATIVE: CASE EVENT DATE: 20200611
